FAERS Safety Report 5901361-4 (Version None)
Quarter: 2008Q3

REPORT INFORMATION
  Report Type: 
  Country: None (occurrence: None)
  Receive Date: 20080929
  Receipt Date: 20080918
  Transmission Date: 20090109
  Serious: Yes (Other)
  Sender: FDA-Public Use
  Company Number: CA-JNJFOC-20080904997

PATIENT
  Sex: Female
  Weight: 61.3 kg

DRUGS (9)
  1. REMICADE [Suspect]
     Route: 042
  2. REMICADE [Suspect]
     Indication: CROHN'S DISEASE
     Route: 042
  3. ASCOL [Concomitant]
     Route: 042
  4. BIRTH CONTROL [Concomitant]
  5. IRON [Concomitant]
     Route: 048
  6. METHOTREXATE [Concomitant]
     Route: 048
  7. MELOXICAM [Concomitant]
     Route: 048
  8. PREDNISONE [Concomitant]
  9. FOLIC ACID [Concomitant]
     Route: 048

REACTIONS (2)
  - RHEUMATOID ARTHRITIS [None]
  - SYSTEMIC LUPUS ERYTHEMATOSUS [None]
